FAERS Safety Report 11713240 (Version 5)
Quarter: 2017Q3

REPORT INFORMATION
  Report Type: Report from Study
  Country: US (occurrence: US)
  Receive Date: 20151109
  Receipt Date: 20170912
  Transmission Date: 20171127
  Serious: Yes (Hospitalization, Other)
  Sender: FDA-Public Use
  Company Number: US-UCBSA-2015035534

PATIENT
  Age: 61 Year
  Sex: Female
  Weight: 82.54 kg

DRUGS (23)
  1. COSAMINE [Concomitant]
     Indication: ARTHRITIS
     Dosage: UNK, 2X/DAY (BID)
     Route: 048
  2. MORPHINE [Concomitant]
     Active Substance: MORPHINE
     Indication: PRODUCT USED FOR UNKNOWN INDICATION
  3. LIDODERM [Concomitant]
     Indication: PRODUCT USED FOR UNKNOWN INDICATION
  4. COENZYME Q10 [Concomitant]
     Active Substance: UBIDECARENONE
     Indication: PRODUCT USED FOR UNKNOWN INDICATION
  5. HALOBETASOL PROPIONATE. [Concomitant]
     Active Substance: HALOBETASOL PROPIONATE
     Indication: PRODUCT USED FOR UNKNOWN INDICATION
  6. OXYCODONE [Concomitant]
     Active Substance: OXYCODONE
     Indication: SHOULDER OPERATION
  7. FOLIC ACID [Concomitant]
     Indication: PRODUCT USED FOR UNKNOWN INDICATION
  8. CLOBETASOL [Concomitant]
     Active Substance: CLOBETASOL
     Indication: PRODUCT USED FOR UNKNOWN INDICATION
  9. ENBREL [Concomitant]
     Indication: PSORIATIC ARTHROPATHY
     Dosage: 50 MG, WEEKLY (QW)
     Dates: start: 200612, end: 2012
  10. ENBREL [Concomitant]
     Dosage: UNK
     Dates: start: 2016
  11. HYDROCORTISONE [Concomitant]
     Indication: PRODUCT USED FOR UNKNOWN INDICATION
  12. TRAMADOL [Concomitant]
     Indication: PSORIATIC ARTHROPATHY
  13. CERTOLIZUMAB PEGOL [Suspect]
     Active Substance: CERTOLIZUMAB PEGOL
     Dosage: 200 MG, ONCE EVERY 10 DAYS
     Dates: start: 20140303
  14. CERTOLIZUMAB PEGOL [Suspect]
     Active Substance: CERTOLIZUMAB PEGOL
     Dosage: 200 MG, EV 2 WEEKS(QOW)
     Dates: end: 201605
  15. TIZANIDINE [Concomitant]
     Indication: PRODUCT USED FOR UNKNOWN INDICATION
  16. CYANOCOBALAMIN W/THIAMINE [Concomitant]
     Indication: PRODUCT USED FOR UNKNOWN INDICATION
     Dosage: UNK
  17. CERTOLIZUMAB PEGOL [Suspect]
     Active Substance: CERTOLIZUMAB PEGOL
     Indication: PSORIATIC ARTHROPATHY
     Dosage: 200 MG, EVERY 10DAYS
     Route: 058
     Dates: start: 201309, end: 2013
  18. APREMILAST [Concomitant]
     Active Substance: APREMILAST
     Indication: PSORIATIC ARTHROPATHY
     Dosage: 30 MG, 2X/DAY (BID)
     Route: 048
     Dates: start: 201505
  19. ALLOPURINOL [Concomitant]
     Indication: GOUT
     Dosage: 100 MG, ONCE DAILY (QD)
     Route: 048
  20. FLAXSEED [Concomitant]
     Active Substance: FLAX SEED
     Indication: PRODUCT USED FOR UNKNOWN INDICATION
  21. VOLTAREN [Concomitant]
     Indication: PSORIATIC ARTHROPATHY
  22. CERTOLIZUMAB PEGOL [Suspect]
     Active Substance: CERTOLIZUMAB PEGOL
     Dosage: 200 MG, EV 3 WEEKS
     Dates: start: 20131201, end: 201312
  23. APREMILAST [Concomitant]
     Active Substance: APREMILAST
     Indication: PRODUCT USED FOR UNKNOWN INDICATION

REACTIONS (16)
  - Osteoarthritis [Unknown]
  - Hyperpyrexia [Recovered/Resolved]
  - Arthritis bacterial [Unknown]
  - Sepsis [Recovered/Resolved]
  - Rotator cuff syndrome [Recovered/Resolved]
  - Hyperhidrosis [Not Recovered/Not Resolved]
  - Liver function test abnormal [Unknown]
  - Gout [Recovered/Resolved]
  - Urinary tract infection [Recovered/Resolved]
  - Urosepsis [Unknown]
  - Benign neoplasm of cervix uteri [Unknown]
  - Immunodeficiency [Unknown]
  - Off label use [Unknown]
  - Kidney infection [Recovered/Resolved]
  - Lumbar spinal stenosis [Unknown]
  - Drug ineffective [Unknown]

NARRATIVE: CASE EVENT DATE: 2013
